FAERS Safety Report 13909283 (Version 1)
Quarter: 2017Q3

REPORT INFORMATION
  Report Type: Spontaneous
  Country: US (occurrence: US)
  Receive Date: 20170828
  Receipt Date: 20170828
  Transmission Date: 20171127
  Serious: Yes (Hospitalization, Other)
  Sender: FDA-Public Use
  Company Number: US-ZYDUS-016235

PATIENT
  Age: 83 Year
  Sex: Female

DRUGS (5)
  1. WARFARIN [Suspect]
     Active Substance: WARFARIN
     Indication: PULMONARY EMBOLISM
     Route: 065
  2. OSELTAMIVIR/OSELTAMIVIR PHOSPHATE [Interacting]
     Active Substance: OSELTAMIVIR
     Indication: PRODUCT USED FOR UNKNOWN INDICATION
     Route: 065
  3. PIPERACILLIN/TAZOBACTAM [Concomitant]
     Indication: PRODUCT USED FOR UNKNOWN INDICATION
     Route: 065
  4. WARFARIN [Interacting]
     Active Substance: WARFARIN
     Indication: PULMONARY EMBOLISM
     Route: 065
  5. FUROSEMIDE. [Concomitant]
     Active Substance: FUROSEMIDE
     Indication: PRODUCT USED FOR UNKNOWN INDICATION
     Route: 042

REACTIONS (21)
  - Productive cough [Unknown]
  - Lung infiltration [Unknown]
  - Blood pressure diastolic increased [None]
  - Platelet count increased [None]
  - Respiratory distress [Unknown]
  - Condition aggravated [Recovered/Resolved]
  - Coagulopathy [Recovered/Resolved]
  - Jugular vein distension [None]
  - Acute respiratory failure [Recovered/Resolved]
  - Heart rate increased [None]
  - Haemoglobin decreased [None]
  - Pneumonia [None]
  - Influenza [Unknown]
  - Pulmonary oedema [None]
  - Chills [Unknown]
  - N-terminal prohormone brain natriuretic peptide increased [None]
  - Drug interaction [Unknown]
  - White blood cell count increased [None]
  - Cardiac failure congestive [None]
  - Pleural effusion [Unknown]
  - Anticoagulation drug level above therapeutic [Recovered/Resolved]
